FAERS Safety Report 22349179 (Version 1)
Quarter: 2023Q2

REPORT INFORMATION
  Report Type: Spontaneous
  Country: US (occurrence: None)
  Receive Date: 20230519
  Receipt Date: 20230519
  Transmission Date: 20230722
  Serious: Yes (Hospitalization)
  Sender: FDA-Public Use
  Company Number: None

PATIENT
  Age: 67 Year
  Sex: Male
  Weight: 65.09 kg

DRUGS (4)
  1. CAPECITABINE [Suspect]
     Active Substance: CAPECITABINE
     Indication: Colon cancer
     Dosage: FREQUENCY : TWICE A DAY;?
     Route: 048
     Dates: start: 202304
  2. CARVEDILOL [Concomitant]
  3. GLIPIZIDE ER [Concomitant]
     Active Substance: GLIPIZIDE
  4. NORCO [Concomitant]

REACTIONS (2)
  - Disease complication [None]
  - Colon cancer [None]
